FAERS Safety Report 17328238 (Version 2)
Quarter: 2020Q2

REPORT INFORMATION
  Report Type: Spontaneous
  Country: US (occurrence: US)
  Receive Date: 20200127
  Receipt Date: 20200403
  Transmission Date: 20200713
  Serious: No
  Sender: FDA-Public Use
  Company Number: US-VIFOR (INTERNATIONAL) INC.-VIT-2020-00458

PATIENT
  Age: 57 Year
  Sex: Female

DRUGS (31)
  1. ZOLOFT [Concomitant]
     Active Substance: SERTRALINE HYDROCHLORIDE
     Dates: start: 20050805
  2. ESTRADIOL. [Concomitant]
     Active Substance: ESTRADIOL
     Dates: start: 20190124
  3. SERTRALINE [Concomitant]
     Active Substance: SERTRALINE HYDROCHLORIDE
     Dates: start: 20200309
  4. SODIUM BICARBONATE. [Concomitant]
     Active Substance: SODIUM BICARBONATE
     Dates: start: 20190812
  5. CLONIDINE. [Concomitant]
     Active Substance: CLONIDINE
     Dates: start: 20200210
  6. AMLODIPINE [Concomitant]
     Active Substance: AMLODIPINE BESYLATE
     Dates: start: 20200108
  7. APAP/CODEINE [Concomitant]
     Active Substance: ACETAMINOPHEN\CODEINE PHOSPHATE
     Dosage: 300-30 MG
     Dates: start: 20191207
  8. SYNTHROID [Concomitant]
     Active Substance: LEVOTHYROXINE SODIUM
     Dates: start: 20050805
  9. CALCITRIOL. [Concomitant]
     Active Substance: CALCITRIOL
     Dates: start: 20191209
  10. AURYXIA [Concomitant]
     Active Substance: TETRAFERRIC TRICITRATE DECAHYDRATE
     Dates: start: 20191010
  11. AMLODIPINE [Concomitant]
     Active Substance: AMLODIPINE BESYLATE
     Dates: start: 20200308
  12. ENALAPRIL [Concomitant]
     Active Substance: ENALAPRIL
     Dates: start: 20200207
  13. ESTRADIOL. [Concomitant]
     Active Substance: ESTRADIOL
     Dates: start: 20200312
  14. CLONIDINE. [Concomitant]
     Active Substance: CLONIDINE
     Dates: start: 20190925
  15. LEVOTHYROXIN [Concomitant]
     Active Substance: LEVOTHYROXINE
     Dates: start: 20191109, end: 20200108
  16. APAP/CODEINE [Concomitant]
     Active Substance: ACETAMINOPHEN\CODEINE PHOSPHATE
     Dosage: 300-30 MG
     Dates: start: 20191209
  17. VELTASSA [Suspect]
     Active Substance: PATIROMER
     Indication: HYPERKALAEMIA
     Route: 048
     Dates: start: 20170511
  18. CALCITRIOL. [Concomitant]
     Active Substance: CALCITRIOL
     Dates: start: 20191207
  19. LORATADINE. [Concomitant]
     Active Substance: LORATADINE
     Dates: start: 20190913
  20. CLONIDINE. [Concomitant]
     Active Substance: CLONIDINE
     Dates: start: 20200207
  21. TIZANIDINE. [Concomitant]
     Active Substance: TIZANIDINE
     Dates: start: 20191207
  22. SERTRALINE [Concomitant]
     Active Substance: SERTRALINE HYDROCHLORIDE
     Dates: start: 20200207
  23. GABAPENTIN. [Concomitant]
     Active Substance: GABAPENTIN
     Dates: start: 20200120
  24. AMLODIPINE [Concomitant]
     Active Substance: AMLODIPINE BESYLATE
     Dates: start: 20200309
  25. ENALAPRIL [Concomitant]
     Active Substance: ENALAPRIL
     Dates: start: 20191109
  26. CALCITRIOL. [Concomitant]
     Active Substance: CALCITRIOL
     Dates: start: 20190524, end: 20200108
  27. SERTRALINE [Concomitant]
     Active Substance: SERTRALINE HYDROCHLORIDE
     Dates: start: 20190712
  28. AMLODIPINE [Concomitant]
     Active Substance: AMLODIPINE BESYLATE
     Dates: start: 20191013
  29. GABAPENTIN. [Concomitant]
     Active Substance: GABAPENTIN
     Dates: start: 20200217
  30. LEVOTHYROXIN [Concomitant]
     Active Substance: LEVOTHYROXINE
     Dates: start: 20191111
  31. GABAPENTIN. [Concomitant]
     Active Substance: GABAPENTIN
     Dates: start: 20191209

REACTIONS (2)
  - No adverse event [Unknown]
  - Product dose omission [Not Recovered/Not Resolved]

NARRATIVE: CASE EVENT DATE: 20191210
